FAERS Safety Report 6469369-0 (Version None)
Quarter: 2009Q4

REPORT INFORMATION
  Report Type: 
  Country: None (occurrence: None)
  Receive Date: 20091203
  Receipt Date: 20070928
  Transmission Date: 20100525
  Serious: Yes (Death, Life-Threatening, Disabling, Other)
  Sender: FDA-Public Use
  Company Number: GB-ELI_LILLY_AND_COMPANY-GB200709006711

PATIENT
  Age: 37 Year
  Sex: Male
  Weight: 120.5 kg

DRUGS (4)
  1. CYMBALTA [Suspect]
     Indication: DEPRESSION
     Dosage: 1 D/F, DAILY (1/D)
     Dates: start: 20070404
  2. AMITRIPTYLINE [Concomitant]
     Indication: DEPRESSION
     Dosage: 3 D/F, DAILY (1/D)
     Route: 048
     Dates: start: 20060512, end: 20070519
  3. DICLOFENAC [Concomitant]
     Indication: PAIN IN EXTREMITY
     Dosage: 1 D/F, 2/D
     Route: 048
     Dates: start: 20070518, end: 20070519
  4. TRAMADOL HCL [Concomitant]
     Indication: PAIN IN EXTREMITY
     Route: 048
     Dates: start: 20070518, end: 20070519

REACTIONS (1)
  - SUDDEN DEATH [None]
